FAERS Safety Report 10563337 (Version 1)
Quarter: 2014Q4

REPORT INFORMATION
  Report Type: Spontaneous
  Country: US (occurrence: US)
  Receive Date: 20141104
  Receipt Date: 20141104
  Transmission Date: 20150529
  Serious: No
  Sender: FDA-Public Use
  Company Number: US-PFIZER INC-2014303686

PATIENT
  Sex: Female

DRUGS (2)
  1. TYLENOL WITH CODEINE [Suspect]
     Active Substance: ACETAMINOPHEN\CODEINE PHOSPHATE
     Indication: PAIN IN EXTREMITY
     Dosage: 1 TO 2 DOSAGE FORM, AS NEEDED
     Dates: start: 20141030
  2. ADVIL [Suspect]
     Active Substance: IBUPROFEN
     Indication: PAIN IN EXTREMITY
     Dosage: 400 MG TO 600MG, AS NEEDED
     Dates: start: 201410, end: 20141031

REACTIONS (1)
  - Pruritus [Unknown]

NARRATIVE: CASE EVENT DATE: 201410
